FAERS Safety Report 19663967 (Version 2)
Quarter: 2021Q4

REPORT INFORMATION
  Report Type: Spontaneous
  Country: FR (occurrence: FR)
  Receive Date: 20210805
  Receipt Date: 20211002
  Transmission Date: 20220303
  Serious: Yes (Death, Other)
  Sender: FDA-Public Use
  Company Number: None

PATIENT
  Age: 90 Year
  Sex: Male

DRUGS (11)
  1. RAMIPRIL [Suspect]
     Active Substance: RAMIPRIL
     Indication: Wrong patient
     Dosage: 2.5 MG, ONCE DAILY (TOTAL) ORAL
     Route: 048
     Dates: start: 20210707, end: 20210707
  2. METFORMIN HYDROCHLORIDE [Suspect]
     Active Substance: METFORMIN HYDROCHLORIDE
     Indication: Wrong patient
     Dosage: 1 G, ONCE DAILY (TOTAL)
     Route: 048
     Dates: start: 20210707, end: 20210707
  3. RIVAROXABAN [Suspect]
     Active Substance: RIVAROXABAN
     Indication: Arrhythmia
     Dosage: 10 MG, ONCE DAILY (TOTAL)
     Route: 048
     Dates: start: 20210707, end: 20210707
  4. TAMSULOSIN HYDROCHLORIDE [Suspect]
     Active Substance: TAMSULOSIN HYDROCHLORIDE
     Indication: Wrong patient
     Dosage: 0.4 MG, TOTAL
     Route: 048
     Dates: start: 20210707, end: 20210707
  5. DOLIPRANE [Suspect]
     Active Substance: ACETAMINOPHEN
     Indication: Wrong patient
     Dosage: 1 G, TOTAL
     Route: 048
     Dates: start: 20210707, end: 20210707
  6. ELIQUIS [Suspect]
     Active Substance: APIXABAN
     Indication: Wrong patient
     Dosage: 5 MG, TOTAL
     Route: 048
     Dates: start: 20210707, end: 20210707
  7. FUROSEMIDE [Concomitant]
     Active Substance: FUROSEMIDE
  8. LEVOTHYROXINE [Concomitant]
     Active Substance: LEVOTHYROXINE
     Dosage: UNK
  9. IRBESARTAN [Concomitant]
     Active Substance: IRBESARTAN
     Dosage: UNK
  10. POLYETHYLENE GLYCOL 4000 [Concomitant]
     Active Substance: POLYETHYLENE GLYCOL 4000
     Dosage: 10 G
  11. NEBIVOLOL [Concomitant]
     Active Substance: NEBIVOLOL
     Dosage: UNK

REACTIONS (2)
  - Sudden death [Fatal]
  - Wrong patient received product [Fatal]

NARRATIVE: CASE EVENT DATE: 20210707
